FAERS Safety Report 21008949 (Version 1)
Quarter: 2022Q2

REPORT INFORMATION
  Report Type: Other
  Country: MA (occurrence: None)
  Receive Date: 20220627
  Receipt Date: 20220627
  Transmission Date: 20220721
  Serious: Yes (Other)
  Sender: FDA-Public Use
  Company Number: MA-ROCHE-3122773

PATIENT
  Sex: Male

DRUGS (3)
  1. TOCILIZUMAB [Suspect]
     Active Substance: TOCILIZUMAB
     Indication: Behcet^s syndrome
     Route: 065
  2. ADALIMUMAB [Suspect]
     Active Substance: ADALIMUMAB
     Indication: Behcet^s syndrome
     Route: 065
  3. INFLIXIMAB [Suspect]
     Active Substance: INFLIXIMAB
     Indication: Behcet^s syndrome
     Route: 065

REACTIONS (2)
  - Tuberculosis [Unknown]
  - Treatment failure [Unknown]
